FAERS Safety Report 4280000-5 (Version None)
Quarter: 2004Q1

REPORT INFORMATION
  Report Type: 
  Country: None (occurrence: None)
  Receive Date: 20040121
  Receipt Date: 20040102
  Transmission Date: 20041129
  Serious: Yes (Hospitalization)
  Sender: FDA-Public Use
  Company Number: F01200400005

PATIENT
  Age: 61 Year
  Sex: Female

DRUGS (9)
  1. (OXALIPLATIN) - SOLUTION - 85 MG/M2 [Suspect]
     Indication: COLORECTAL CANCER
     Dosage: 85 MG/M2 Q2W
     Route: 042
     Dates: start: 20031218, end: 20031218
  2. FLUOROURACIL [Suspect]
     Dosage: 500 MG/M2 BOLUS ON D1, D8 AND D15, Q4W
     Route: 040
     Dates: start: 20031218, end: 20031218
  3. LEUCOVORIN CALCIUM [Suspect]
     Dosage: 20MG/M2 ON D1, D8 AND 15, Q4W
     Route: 040
     Dates: start: 20031218, end: 20031218
  4. AVASTIN [Suspect]
     Dosage: 5 MG/KG (D1 AND D15-Q4W) OVER 30-90 MINUTES IV INFUSION
     Route: 042
     Dates: start: 20031218, end: 20031218
  5. PROTONIX [Concomitant]
  6. SYNTHROID [Concomitant]
  7. MEGACE [Concomitant]
  8. LORAZEPAM [Concomitant]
  9. ZOFRAN [Concomitant]

REACTIONS (7)
  - BLOOD CREATININE INCREASED [None]
  - DEHYDRATION [None]
  - GASTROENTERITIS [None]
  - HYPONATRAEMIA [None]
  - HYPOTENSION [None]
  - INTESTINAL DILATATION [None]
  - SYNCOPE [None]
